FAERS Safety Report 5412814-X (Version None)
Quarter: 2007Q3

REPORT INFORMATION
  Report Type: 
  Country: None (occurrence: None)
  Receive Date: 20070813
  Receipt Date: 20070731
  Transmission Date: 20080115
  Serious: No
  Sender: FDA-Public Use
  Company Number: US-ELI_LILLY_AND_COMPANY-US200707007263

PATIENT
  Age: 39 Year
  Sex: Female

DRUGS (9)
  1. CYMBALTA [Suspect]
     Indication: NERVOUSNESS
     Dosage: 60 MG, DAILY (1/D)
     Dates: start: 20060701, end: 20070701
  2. CYMBALTA [Suspect]
     Dosage: 60 MG, QOD
     Dates: start: 20070701, end: 20070726
  3. SYNTHROID [Concomitant]
     Dosage: 175 UG, UNK
  4. SYNTHROID [Concomitant]
     Dosage: 200 UG, UNK
  5. VITAMINS NOS [Concomitant]
  6. ZITHROMAX [Concomitant]
     Dosage: 500 MG, UNK
     Dates: start: 20070601, end: 20070101
  7. ZITHROMAX [Concomitant]
     Dosage: UNK, DAILY (1/D)
     Route: 048
  8. ROCEPHIN [Concomitant]
     Dosage: 1 G, DAILY (1/D)
     Dates: start: 20070601, end: 20070101
  9. ROCEPHIN [Concomitant]
     Dosage: 5 G, DAILY (1/D)
     Dates: start: 20070601

REACTIONS (8)
  - DYSKINESIA [None]
  - FEELING ABNORMAL [None]
  - HEADACHE [None]
  - HEPATIC FUNCTION ABNORMAL [None]
  - OCULAR ICTERUS [None]
  - PALLOR [None]
  - SOMATIC DELUSION [None]
  - TINNITUS [None]
